FAERS Safety Report 7593270-2 (Version None)
Quarter: 2011Q3

REPORT INFORMATION
  Report Type: 
  Country: None (occurrence: None)
  Receive Date: 20110706
  Receipt Date: 20110624
  Transmission Date: 20111222
  Serious: Yes (Other)
  Sender: FDA-Public Use
  Company Number: CN-GENZYME-THYM-1002560

PATIENT
  Age: 15 Year
  Sex: Male

DRUGS (25)
  1. PREDNISOLONE [Concomitant]
     Dosage: 15 MG, QD
     Route: 065
     Dates: start: 20070801, end: 20071001
  2. MYCOPHENOLATE MEFETIL [Concomitant]
     Indication: IMMUNOSUPPRESSION
     Dosage: 1.5 G, QD
     Route: 065
     Dates: start: 20060901, end: 20061001
  3. TACROLIMUS [Concomitant]
     Dosage: 9 MG, QD
     Route: 065
     Dates: start: 20070301, end: 20070501
  4. TACROLIMUS [Concomitant]
     Dosage: 6 MG, QD
     Route: 065
     Dates: start: 20070801, end: 20090601
  5. IMMUNE GLOBULIN NOS [Suspect]
     Dosage: 0.4 OTHER, QD
     Route: 042
     Dates: start: 20070501, end: 20070501
  6. CORTICOSTEROIDS [Concomitant]
     Indication: KIDNEY TRANSPLANT REJECTION
     Route: 065
  7. PREDNISOLONE [Concomitant]
     Dosage: 20 MG, QD
     Route: 065
     Dates: start: 20061001, end: 20061001
  8. PREDNISOLONE [Concomitant]
     Dosage: 15 MG, QD
     Route: 065
     Dates: start: 20061101, end: 20070301
  9. PREDNISOLONE [Concomitant]
     Dosage: 10 MG, QD
     Route: 065
     Dates: start: 20071201, end: 20090601
  10. IMMUNE GLOBULIN NOS [Suspect]
     Dosage: 0.2 OTHER, QD
     Route: 042
     Dates: start: 20070201, end: 20070201
  11. IMMUNE GLOBULIN NOS [Suspect]
     Dosage: 0.4 OTHER, QD
     Route: 042
     Dates: start: 20070401, end: 20070401
  12. METHYLPREDNISOLONE [Concomitant]
     Indication: PREMEDICATION
     Route: 065
  13. THYMOGLOBULIN [Suspect]
     Indication: KIDNEY TRANSPLANT REJECTION
     Route: 042
  14. PREDNISOLONE [Concomitant]
     Indication: IMMUNOSUPPRESSION
     Dosage: 60 MG, QD
     Route: 065
     Dates: start: 20060901, end: 20060901
  15. TACROLIMUS [Concomitant]
     Indication: IMMUNOSUPPRESSION
     Dosage: 10 MG, QD
     Route: 065
     Dates: start: 20060901, end: 20070201
  16. RAPAMYCIN [Concomitant]
     Dosage: 1.5 MG, QD
     Route: 065
     Dates: start: 20000205, end: 20070501
  17. PREDNISOLONE [Concomitant]
     Dosage: 20 MG, QD
     Route: 065
     Dates: start: 20070601, end: 20070701
  18. MYCOPHENOLATE MEFETIL [Concomitant]
     Dosage: 1.0 G, QD
     Route: 065
     Dates: start: 20061101, end: 20061101
  19. RAPAMYCIN [Concomitant]
     Indication: PRODUCT USED FOR UNKNOWN INDICATION
     Dosage: 2 MG, QD
     Route: 065
     Dates: start: 20061201, end: 20070401
  20. BASILIXIMAB [Concomitant]
     Indication: IMMUNOSUPPRESSION
     Route: 065
  21. IMMUNE GLOBULIN NOS [Suspect]
     Indication: ANAEMIA
     Dosage: 0.4 OTHER, QD
     Route: 042
     Dates: start: 20061201, end: 20061201
  22. PREDNISOLONE [Concomitant]
     Dosage: 10 MG, QD
     Route: 065
     Dates: start: 20070401, end: 20070501
  23. TACROLIMUS [Concomitant]
     Dosage: 8 MG, QD
     Route: 065
     Dates: start: 20070601, end: 20070701
  24. IMMUNE GLOBULIN NOS [Suspect]
     Dosage: 0.4 OTHER, QD
     Route: 042
     Dates: start: 20070701, end: 20070701
  25. IMMUNE GLOBULIN NOS [Suspect]
     Dosage: 0.4 OTHER, QD
     Route: 042
     Dates: start: 20070601, end: 20070601

REACTIONS (7)
  - BLOOD CREATININE INCREASED [None]
  - DRUG HYPERSENSITIVITY [None]
  - PYREXIA [None]
  - NEPHROPATHY TOXIC [None]
  - PULMONARY OEDEMA [None]
  - ANAEMIA [None]
  - ERYTHEMA INFECTIOSUM [None]
